FAERS Safety Report 18714832 (Version 4)
Quarter: 2021Q4

REPORT INFORMATION
  Report Type: Report from Study
  Country: None (occurrence: BR)
  Receive Date: 20210107
  Receipt Date: 20211013
  Transmission Date: 20220304
  Serious: Yes (Hospitalization, Other)
  Sender: FDA-Public Use
  Company Number: BR-ABBVIE-21K-020-3717896-00

PATIENT
  Sex: Female

DRUGS (4)
  1. SKYRIZI [Suspect]
     Active Substance: RISANKIZUMAB-RZAA
     Indication: Psoriasis
     Route: 058
     Dates: start: 20201007
  2. SKYRIZI [Suspect]
     Active Substance: RISANKIZUMAB-RZAA
     Dosage: UNSPECIFIC DOSE
     Route: 058
  3. LEVOTHYROXINE [Concomitant]
     Active Substance: LEVOTHYROXINE
     Indication: Thyroid disorder
     Dosage: UNSPECIFIC DOSE
  4. OMEPRAZOLE [Concomitant]
     Active Substance: OMEPRAZOLE
     Indication: Gastric disorder
     Dosage: UNSPECIFIC DOSE

REACTIONS (14)
  - Malaise [Unknown]
  - Anxiety [Unknown]
  - Arrhythmia [Not Recovered/Not Resolved]
  - Cerebrovascular accident [Not Recovered/Not Resolved]
  - Cardiac arrest [Unknown]
  - Palpitations [Unknown]
  - Catheterisation cardiac [Unknown]
  - Malaise [Unknown]
  - Thyroid disorder [Unknown]
  - Gait disturbance [Unknown]
  - Dyspnoea [Unknown]
  - Cardiac steatosis [Unknown]
  - Hypertension [Not Recovered/Not Resolved]
  - Weight increased [Unknown]

NARRATIVE: CASE EVENT DATE: 20200101
